FAERS Safety Report 10920454 (Version 1)
Quarter: 2015Q1

REPORT INFORMATION
  Report Type: Spontaneous
  Country: US (occurrence: None)
  Receive Date: 20150313
  Receipt Date: 20150313
  Transmission Date: 20150721
  Serious: No
  Sender: FDA-Public Use
  Company Number: None

PATIENT
  Sex: Female
  Weight: 60.33 kg

DRUGS (7)
  1. CEPHALEXIN 500MG [Suspect]
     Active Substance: CEPHALEXIN
     Indication: CELLULITIS
     Dosage: ONE CAPSULE
     Route: 048
     Dates: start: 20150131, end: 20150202
  2. CEPHALEXIN 500MG [Suspect]
     Active Substance: CEPHALEXIN
     Indication: TINEA PEDIS
     Dosage: ONE CAPSULE
     Route: 048
     Dates: start: 20150131, end: 20150202
  3. FLUCONAZOLE. [Concomitant]
     Active Substance: FLUCONAZOLE
  4. MOTRIN [Concomitant]
     Active Substance: IBUPROFEN
  5. EPSOM SALT [Concomitant]
     Active Substance: MAGNESIUM SULFATE
  6. AVEENO ACTIVE NATURAL [Concomitant]
  7. NYSTATIN. [Concomitant]
     Active Substance: NYSTATIN

REACTIONS (6)
  - Swelling face [None]
  - Drug hypersensitivity [None]
  - Dyspnoea [None]
  - Swollen tongue [None]
  - Pharyngeal oedema [None]
  - Lip swelling [None]

NARRATIVE: CASE EVENT DATE: 20150202
